FAERS Safety Report 4838215-0 (Version None)
Quarter: 2005Q4

REPORT INFORMATION
  Report Type: 
  Country: None (occurrence: None)
  Receive Date: 20051123
  Receipt Date: 20051108
  Transmission Date: 20060501
  Serious: Yes (Death, Hospitalization)
  Sender: FDA-Public Use
  Company Number: AND_0244_2005

PATIENT
  Age: 55 Year
  Sex: Female

DRUGS (3)
  1. CLARITHROMYCIN [Suspect]
     Indication: PNEUMONIA
     Dosage: 250 MG BID PO
     Route: 048
  2. COLCHICINE [Suspect]
     Indication: GOUT
     Dosage: 0.5 MG TID PO
     Route: 048
  3. PIPERACILLIN-TAZOBACTAM [Concomitant]

REACTIONS (4)
  - AGRANULOCYTOSIS [None]
  - BONE MARROW FAILURE [None]
  - DRUG INTERACTION [None]
  - FEBRILE NEUTROPENIA [None]
